FAERS Safety Report 22085431 (Version 1)
Quarter: 2023Q1

REPORT INFORMATION
  Report Type: Spontaneous
  Country: US (occurrence: None)
  Receive Date: 20230310
  Receipt Date: 20230310
  Transmission Date: 20230417
  Serious: Yes (Disabling, Other)
  Sender: FDA-Public Use
  Company Number: None

PATIENT
  Age: 70 Year
  Sex: Female
  Weight: 60.3 kg

DRUGS (1)
  1. EVEROLIMUS [Suspect]
     Active Substance: EVEROLIMUS
     Indication: Breast cancer
     Dosage: OTHER QUANTITY : 1 TABLET(S);?FREQUENCY : DAILY;?
     Route: 048

REACTIONS (16)
  - Dyspnoea [None]
  - Asthenia [None]
  - Tremor [None]
  - Dysphagia [None]
  - Dry mouth [None]
  - Back pain [None]
  - Alopecia [None]
  - Decreased appetite [None]
  - Sputum discoloured [None]
  - Fatigue [None]
  - Weight decreased [None]
  - Vomiting [None]
  - Epistaxis [None]
  - Myalgia [None]
  - Abdominal discomfort [None]
  - Pain in extremity [None]

NARRATIVE: CASE EVENT DATE: 20230309
